FAERS Safety Report 23080431 (Version 1)
Quarter: 2023Q4

REPORT INFORMATION
  Report Type: Spontaneous
  Country: US (occurrence: None)
  Receive Date: 20231017
  Receipt Date: 20231017
  Transmission Date: 20240109
  Serious: Yes (Death, Hospitalization)
  Sender: FDA-Public Use
  Company Number: None

PATIENT
  Age: 65 Year
  Sex: Male
  Weight: 69 kg

DRUGS (1)
  1. LURBINECTEDIN [Suspect]
     Active Substance: LURBINECTEDIN
     Dosage: FREQUENCY : ONCE;?
     Route: 042
     Dates: start: 20220401

REACTIONS (6)
  - Diarrhoea [None]
  - Liver function test increased [None]
  - Acute kidney injury [None]
  - Respiratory depression [None]
  - Tachycardia [None]
  - Vomiting [None]

NARRATIVE: CASE EVENT DATE: 20220416
